FAERS Safety Report 13274694 (Version 1)
Quarter: 2017Q1

REPORT INFORMATION
  Report Type: Spontaneous
  Country: FR (occurrence: FR)
  Receive Date: 20170227
  Receipt Date: 20170227
  Transmission Date: 20170428
  Serious: Yes (Other)
  Sender: FDA-Public Use
  Company Number: PHHY2017FR025341

PATIENT
  Age: 19 Year
  Sex: Male

DRUGS (4)
  1. DOXORUBICINE [Concomitant]
     Active Substance: DOXORUBICIN
     Indication: OSTEOSARCOMA RECURRENT
     Route: 065
  2. IFOSFAMIDE. [Concomitant]
     Active Substance: IFOSFAMIDE
     Indication: OSTEOSARCOMA RECURRENT
     Route: 041
  3. MEROPENEM. [Suspect]
     Active Substance: MEROPENEM
     Indication: OSTEOSARCOMA RECURRENT
     Route: 065
  4. CISPLATINE [Concomitant]
     Active Substance: CISPLATIN
     Indication: OSTEOSARCOMA RECURRENT
     Route: 065

REACTIONS (3)
  - Neurotoxicity [Recovered/Resolved]
  - Encephalopathy [Recovered/Resolved]
  - Overdose [Unknown]
